FAERS Safety Report 7421610-3 (Version None)
Quarter: 2011Q2

REPORT INFORMATION
  Report Type: 
  Country: None (occurrence: None)
  Receive Date: 20110408
  Receipt Date: 20110331
  Transmission Date: 20111010
  Serious: Yes (Death)
  Sender: FDA-Public Use
  Company Number: 2011S1000116

PATIENT
  Age: 4 Year
  Sex: Female

DRUGS (2)
  1. INOMAX [Suspect]
     Indication: PULMONARY HYPERTENSION
     Dosage: 5 PPM, CONT; INH
     Route: 055
     Dates: start: 20110330, end: 20110331
  2. INOVENT (DELIVERY SYSTEM) [Suspect]

REACTIONS (4)
  - OXYGEN SATURATION DECREASED [None]
  - PERICARDIAL EFFUSION [None]
  - BRADYCARDIA [None]
  - DEVICE MALFUNCTION [None]
